FAERS Safety Report 5694027-X (Version None)
Quarter: 2008Q2

REPORT INFORMATION
  Report Type: 
  Country: None (occurrence: None)
  Receive Date: 20080401
  Receipt Date: 20080325
  Transmission Date: 20081010
  Serious: Yes (Other)
  Sender: FDA-Public Use
  Company Number: 2008007425

PATIENT
  Sex: 0

DRUGS (1)
  1. BENADRYL [Suspect]
     Dosage: ORAL
     Route: 048
     Dates: start: 20080325

REACTIONS (2)
  - ACCIDENTAL DRUG INTAKE BY CHILD [None]
  - GAIT DISTURBANCE [None]
